FAERS Safety Report 15223872 (Version 1)
Quarter: 2018Q3

REPORT INFORMATION
  Report Type: Spontaneous
  Country: US (occurrence: US)
  Receive Date: 20180705
  Receipt Date: 20180705
  Transmission Date: 20181010
  Serious: Yes (Life-Threatening, Hospitalization, Congenital Anomaly)
  Sender: FDA-Public Use
  Company Number: None

PATIENT
  Age: 46 Year
  Sex: Female
  Weight: 74 kg

DRUGS (3)
  1. AMLODIPINE [Suspect]
     Active Substance: AMLODIPINE BESYLATE
     Indication: HYPERTENSION
     Route: 048
  2. CARDENE [Suspect]
     Active Substance: NICARDIPINE HYDROCHLORIDE
     Indication: CEREBRAL HAEMORRHAGE
     Dosage: ?          OTHER FREQUENCY:IV CONTINUOUS;?
     Route: 041
     Dates: start: 20180523, end: 20180525
  3. AMLODIPINE [Suspect]
     Active Substance: AMLODIPINE BESYLATE
     Indication: CEREBRAL HAEMORRHAGE
     Route: 048

REACTIONS (2)
  - Swollen tongue [None]
  - Protrusion tongue [None]

NARRATIVE: CASE EVENT DATE: 20180525
